FAERS Safety Report 8522968-4 (Version None)
Quarter: 2012Q3

REPORT INFORMATION
  Report Type: 
  Country: None (occurrence: None)
  Receive Date: 20120720
  Receipt Date: 20120711
  Transmission Date: 20120928
  Serious: No
  Sender: FDA-Public Use
  Company Number: US-BIOGENIDEC-2012BI025001

PATIENT
  Age: 45 Year
  Sex: Female

DRUGS (2)
  1. AVONEX [Suspect]
     Indication: MULTIPLE SCLEROSIS
     Route: 030
     Dates: start: 19961001, end: 20100501
  2. AVONEX [Suspect]
     Route: 030
     Dates: start: 20120504

REACTIONS (2)
  - MEMORY IMPAIRMENT [None]
  - COGNITIVE DISORDER [None]
